FAERS Safety Report 12701236 (Version 1)
Quarter: 2016Q3

REPORT INFORMATION
  Report Type: Spontaneous
  Country: US (occurrence: None)
  Receive Date: 20160830
  Receipt Date: 20160830
  Transmission Date: 20161109
  Serious: Yes (Disabling)
  Sender: FDA-Public Use
  Company Number: None

PATIENT
  Age: 67 Year
  Sex: Male
  Weight: 77.11 kg

DRUGS (2)
  1. CIPROFLOXACN 500MG TAB TEV PLIVA HRVATSKA D.O.O. ZAGREB CROATIA FOR TEVA PHARM [Suspect]
     Active Substance: CIPROFLOXACIN
     Indication: URINARY TRACT INFECTION
     Dosage: 28 PILLS TWICE DAILY BY MOUTH
     Route: 048
     Dates: start: 20160525, end: 20160606
  2. TERAZOSIN [Concomitant]
     Active Substance: TERAZOSIN\TERAZOSIN HYDROCHLORIDE

REACTIONS (8)
  - Hypoaesthesia [None]
  - Confusional state [None]
  - Pain in extremity [None]
  - Paranoia [None]
  - Asthenia [None]
  - Arthralgia [None]
  - Neck pain [None]
  - Amnesia [None]

NARRATIVE: CASE EVENT DATE: 20160707
